FAERS Safety Report 13948377 (Version 2)
Quarter: 2017Q3

REPORT INFORMATION
  Report Type: Spontaneous
  Country: US (occurrence: US)
  Receive Date: 20170908
  Receipt Date: 20170921
  Transmission Date: 20171128
  Serious: No
  Sender: FDA-Public Use
  Company Number: US-ASTRAZENECA-2017SE91375

PATIENT
  Sex: Male

DRUGS (1)
  1. SYMBICORT [Suspect]
     Active Substance: BUDESONIDE\FORMOTEROL FUMARATE DIHYDRATE
     Indication: PRODUCT USED FOR UNKNOWN INDICATION
     Dosage: 160/4.5 UG, ONCE OR TWICE IN THE MORNING AND ONCE OR TWICE IN THE AFTERNOON
     Route: 055

REACTIONS (4)
  - Oral candidiasis [Unknown]
  - Wrong technique in device usage process [Unknown]
  - Fungal infection [Unknown]
  - Intentional product misuse [Unknown]
